FAERS Safety Report 6509346-4 (Version None)
Quarter: 2009Q4

REPORT INFORMATION
  Report Type: 
  Country: None (occurrence: None)
  Receive Date: 20091218
  Receipt Date: 20091218
  Transmission Date: 20100525
  Serious: Yes (Hospitalization)
  Sender: FDA-Public Use
  Company Number: None

PATIENT
  Age: 64 Year
  Sex: Male
  Weight: 91.9 kg

DRUGS (1)
  1. TRIMETHOPRIM-SULFAMETHOXAZOLE [Suspect]
     Indication: DIVERTICULITIS
     Dosage: 1 TAB BID PO
     Route: 048
     Dates: start: 20091122, end: 20091123

REACTIONS (1)
  - RENAL FAILURE ACUTE [None]
